FAERS Safety Report 20369223 (Version 1)
Quarter: 2022Q1

REPORT INFORMATION
  Report Type: Spontaneous
  Country: US (occurrence: None)
  Receive Date: 20220124
  Receipt Date: 20220124
  Transmission Date: 20220423
  Serious: Yes (Hospitalization)
  Sender: FDA-Public Use
  Company Number: None

PATIENT
  Sex: Male
  Weight: 11.3 kg

DRUGS (1)
  1. CISPLATIN [Suspect]
     Active Substance: CISPLATIN

REACTIONS (6)
  - Tachycardia [None]
  - Embolism [None]
  - Hypertension [None]
  - Tumour haemorrhage [None]
  - Respiratory failure [None]
  - Anaemia [None]

NARRATIVE: CASE EVENT DATE: 20220116
